FAERS Safety Report 8023534-X (Version None)
Quarter: 2012Q1

REPORT INFORMATION
  Report Type: 
  Country: None (occurrence: None)
  Receive Date: 20120105
  Receipt Date: 20111229
  Transmission Date: 20120608
  Serious: No
  Sender: FDA-Public Use
  Company Number: US-BIOGENIDEC-2011BI049028

PATIENT
  Sex: Male

DRUGS (3)
  1. TYSABRI [Suspect]
     Indication: MULTIPLE SCLEROSIS
     Route: 042
     Dates: start: 20110601
  2. TYSABRI [Suspect]
     Route: 042
     Dates: start: 20111222
  3. TYSABRI [Suspect]
     Route: 042
     Dates: start: 20090403, end: 20101029

REACTIONS (8)
  - GAIT DISTURBANCE [None]
  - MULTIPLE SCLEROSIS RELAPSE [None]
  - CHILLS [None]
  - BALANCE DISORDER [None]
  - PYREXIA [None]
  - INSOMNIA [None]
  - FALL [None]
  - MOOD ALTERED [None]
